FAERS Safety Report 4436033-9 (Version None)
Quarter: 2004Q3

REPORT INFORMATION
  Report Type: 
  Country: None (occurrence: None)
  Receive Date: 20040826
  Receipt Date: 20040817
  Transmission Date: 20050211
  Serious: Yes (Hospitalization)
  Sender: FDA-Public Use
  Company Number: 163-20785-03110108

PATIENT
  Age: 64 Year
  Sex: Female

DRUGS (1)
  1. THALOMID [Suspect]
     Indication: MULTIPLE MYELOMA
     Dosage: 200 MG, QD, ORAL
     Route: 048
     Dates: start: 20030422

REACTIONS (3)
  - CRANIAL NERVE DISORDER [None]
  - DISEASE PROGRESSION [None]
  - TONGUE PARALYSIS [None]
